FAERS Safety Report 5044009-6 (Version None)
Quarter: 2006Q2

REPORT INFORMATION
  Report Type: 
  Country: None (occurrence: None)
  Receive Date: 20060601
  Receipt Date: 20060220
  Transmission Date: 20061013
  Serious: No
  Sender: FDA-Public Use
  Company Number: 2006PV008998

PATIENT
  Age: 56 Year
  Sex: Male
  Weight: 166.9237 kg

DRUGS (3)
  1. BYETTA [Suspect]
     Indication: DIABETES MELLITUS NON-INSULIN-DEPENDENT
     Dosage: 5 MCG; BID; SC;
     Route: 058
     Dates: start: 20060216
  2. AMARYL [Concomitant]
  3. ACTOPLUS [Concomitant]

REACTIONS (3)
  - ANOREXIA [None]
  - BLOOD GLUCOSE DECREASED [None]
  - WEIGHT DECREASED [None]
